FAERS Safety Report 6921373-1 (Version None)
Quarter: 2010Q3

REPORT INFORMATION
  Report Type: 
  Country: None (occurrence: None)
  Receive Date: 20100812
  Receipt Date: 20100607
  Transmission Date: 20110219
  Serious: No
  Sender: FDA-Public Use
  Company Number: PHHO2010US08764

PATIENT
  Sex: Female
  Weight: 85 kg

DRUGS (10)
  1. CGP 57148B T35717+ [Suspect]
     Indication: CHRONIC MYELOID LEUKAEMIA
     Dosage: 400 MG/DAY
     Route: 048
     Dates: start: 20080919, end: 20090925
  2. NILOTINIB [Suspect]
     Indication: CHRONIC MYELOID LEUKAEMIA
     Dosage: 200 MG/DAY
     Route: 048
     Dates: start: 20090924, end: 20100603
  3. SPRYCEL [Concomitant]
     Indication: CHRONIC MYELOID LEUKAEMIA
     Dosage: 100 MG/DAY
     Route: 048
     Dates: start: 20080926, end: 20090225
  4. SPRYCEL [Concomitant]
     Dosage: 50 MG/DAY
     Route: 048
     Dates: start: 20090225, end: 20090924
  5. LEVOFLOXACIN [Concomitant]
     Indication: UROSEPSIS
     Dosage: 750 MG/DAY
     Route: 048
     Dates: start: 20091002, end: 20091009
  6. CEFAZOLIN [Concomitant]
     Dosage: UNK
     Route: 048
     Dates: start: 20080927, end: 20080929
  7. CEFTAZIDIME [Concomitant]
     Dosage: UNK
     Route: 048
     Dates: start: 20080927, end: 20080929
  8. IMIPENEM [Concomitant]
     Dosage: UNK
     Route: 048
     Dates: start: 20080927, end: 20081002
  9. ALLOPURINOL [Concomitant]
     Dosage: 300 MG, UNK
     Route: 048
     Dates: start: 20080925, end: 20090302
  10. VICODIN [Concomitant]
     Dosage: PRN
     Route: 048
     Dates: start: 20080925, end: 20090302

REACTIONS (1)
  - DRUG EXPOSURE DURING PREGNANCY [None]
